FAERS Safety Report 7303451-0 (Version None)
Quarter: 2011Q1

REPORT INFORMATION
  Report Type: 
  Country: None (occurrence: None)
  Receive Date: 20110221
  Receipt Date: 20101207
  Transmission Date: 20110831
  Serious: Yes (Hospitalization)
  Sender: FDA-Public Use
  Company Number: US-BAYER-200941896GPV

PATIENT
  Sex: Male
  Weight: 51 kg

DRUGS (18)
  1. NEURONTIN [Interacting]
     Indication: PRODUCT USED FOR UNKNOWN INDICATION
     Dosage: 300 MG, QD
     Dates: start: 20091114, end: 20100315
  2. GARDENAL [Concomitant]
     Dates: start: 20050101
  3. ACETAMINOPHEN AND TRAMADOL HCL [Concomitant]
     Indication: HEADACHE
     Dates: start: 20090801, end: 20091027
  4. SORAFENIB (RAF KINASE INHIBITOR) [Suspect]
     Indication: HEPATIC NEOPLASM MALIGNANT
     Dosage: 400 MG, UNK
     Route: 048
     Dates: start: 20091021, end: 20100407
  5. OXYNORM [Interacting]
     Indication: PAIN
     Dosage: UNK
     Dates: start: 20091202, end: 20091221
  6. GARDENAL [Concomitant]
     Indication: EPILEPSY
     Dosage: UNK
     Dates: start: 19990101
  7. CLARITIN [Concomitant]
     Indication: HEADACHE
     Dates: start: 20000101
  8. EQUANIL [Concomitant]
     Indication: HEADACHE
     Dates: start: 20091202
  9. TRAMADOL HCL [Interacting]
     Indication: HEADACHE
     Dates: start: 20091114, end: 20091201
  10. PARACETAMOL [Concomitant]
     Indication: PAIN
     Dates: start: 20090801, end: 20091027
  11. EFFEXOR [Concomitant]
     Indication: DEPRESSION
     Dates: start: 20091023
  12. ACTIFED [Concomitant]
     Indication: RHINITIS ALLERGIC
     Dosage: UNK UNK, PRN
     Dates: start: 20071010, end: 20091027
  13. TRAMADOL HCL [Interacting]
     Indication: PAIN
     Dosage: UNK
     Dates: start: 20091201, end: 20091221
  14. XANAX [Interacting]
     Indication: DEPRESSION
     Dates: start: 20091202
  15. STILNOX [Interacting]
     Indication: PROPHYLAXIS
     Dosage: UNK
     Dates: start: 20091202, end: 20091223
  16. OMEPRAZOLE [Concomitant]
     Indication: PAIN PROPHYLAXIS
     Dates: start: 20090801
  17. PROPOFAN [CAFF,CARBASAL CA+,CHLORPHENAM MAL,DEXTROPROPOXYPH,PARACET] [Concomitant]
     Indication: PAIN PROPHYLAXIS
     Dosage: UNK
     Dates: start: 20091027
  18. PROPOFAN [CAFF,CARBASAL CA+,CHLORPHENAM MAL,DEXTROPROPOXYPH,PARACET] [Concomitant]
     Dates: start: 20091110, end: 20091113

REACTIONS (2)
  - CONFUSIONAL STATE [None]
  - MALNUTRITION [None]
